FAERS Safety Report 20374551 (Version 2)
Quarter: 2022Q1

REPORT INFORMATION
  Report Type: Spontaneous
  Country: JP (occurrence: None)
  Receive Date: 20220125
  Receipt Date: 20220208
  Transmission Date: 20220423
  Serious: Yes (Other)
  Sender: FDA-Public Use
  Company Number: 2021A612825

PATIENT
  Age: 35 Year

DRUGS (1)
  1. LYNPARZA [Suspect]
     Active Substance: OLAPARIB
     Indication: Breast cancer recurrent
     Route: 048
     Dates: start: 20181016, end: 20201026

REACTIONS (4)
  - Metastases to central nervous system [Unknown]
  - Anaemia [Unknown]
  - Nausea [Unknown]
  - Rash [Unknown]
